FAERS Safety Report 10258355 (Version 1)
Quarter: 2014Q2

REPORT INFORMATION
  Report Type: Spontaneous
  Country: CL (occurrence: CL)
  Receive Date: 20140625
  Receipt Date: 20140625
  Transmission Date: 20141212
  Serious: Yes (Other)
  Sender: FDA-Public Use
  Company Number: CL-PFIZER INC-2014171372

PATIENT
  Age: 88 Year
  Sex: Female

DRUGS (5)
  1. XALATAN [Suspect]
     Indication: CATARACT
     Dosage: UNK
     Dates: start: 2012
  2. LOSARTAN [Concomitant]
  3. ELCAL D SUPRA [Concomitant]
  4. ATORVASTATIN [Concomitant]
  5. DOLOC [Concomitant]

REACTIONS (2)
  - Eye disorder [Unknown]
  - Off label use [Unknown]
